FAERS Safety Report 5489696-3 (Version None)
Quarter: 2007Q4

REPORT INFORMATION
  Report Type: 
  Country: None (occurrence: None)
  Receive Date: 20071010
  Receipt Date: 20070322
  Transmission Date: 20080405
  Serious: Yes (Other)
  Sender: FDA-Public Use
  Company Number: 2007SP005328

PATIENT
  Age: 8 Year
  Sex: Male

DRUGS (3)
  1. PROVENTIL-HFA [Suspect]
     Indication: ASTHMA
     Dosage: PO
     Route: 048
     Dates: start: 20050101
  2. PROVENTIL [Concomitant]
  3. ALBUTEROL SULFATE (S-P) (SOLUTION) [Concomitant]

REACTIONS (1)
  - ANAPHYLACTIC REACTION [None]
